FAERS Safety Report 21164643 (Version 1)
Quarter: 2022Q3

REPORT INFORMATION
  Report Type: Spontaneous
  Country: CA (occurrence: CA)
  Receive Date: 20220803
  Receipt Date: 20220803
  Transmission Date: 20221027
  Serious: Yes (Other)
  Sender: FDA-Public Use
  Company Number: CA-BAXTER-2022BAX016522

PATIENT
  Sex: Female

DRUGS (29)
  1. CYCLOPHOSPHAMIDE [Suspect]
     Active Substance: CYCLOPHOSPHAMIDE
     Indication: Human epidermal growth factor receptor negative
     Dosage: (DOSAGE FORM: NOT SPECIFIED)
     Route: 065
  2. CYCLOPHOSPHAMIDE [Suspect]
     Active Substance: CYCLOPHOSPHAMIDE
     Indication: Hormone receptor positive breast cancer
     Dosage: UNK
     Route: 065
  3. CYCLOPHOSPHAMIDE [Suspect]
     Active Substance: CYCLOPHOSPHAMIDE
     Indication: Breast cancer metastatic
  4. ABRAXANE [Suspect]
     Active Substance: PACLITAXEL
     Indication: Human epidermal growth factor receptor negative
     Dosage: (DOSAGE FORM: POWDER FOR SUSPENSION INTRAVENOUS)
     Route: 065
  5. ABRAXANE [Suspect]
     Active Substance: PACLITAXEL
     Indication: Hormone receptor positive breast cancer
     Dosage: (DOSAGE FORM: POWDER FOR SUSPENSION FOR INJECTION)
     Route: 065
  6. EXEMESTANE [Suspect]
     Active Substance: EXEMESTANE
     Indication: Human epidermal growth factor receptor negative
     Dosage: (DOSAGE FORM: TABLET)
     Route: 065
  7. EXEMESTANE [Suspect]
     Active Substance: EXEMESTANE
     Indication: Hormone receptor positive breast cancer
  8. EXEMESTANE [Suspect]
     Active Substance: EXEMESTANE
     Indication: Breast cancer metastatic
  9. FLUOROURACIL [Suspect]
     Active Substance: FLUOROURACIL
     Indication: Human epidermal growth factor receptor negative
     Dosage: (DOSAGE FORM: NOT SPECIFIED)
     Route: 065
  10. FLUOROURACIL [Suspect]
     Active Substance: FLUOROURACIL
     Indication: Hormone receptor positive breast cancer
     Dosage: UNK
     Route: 065
  11. FLUOROURACIL [Suspect]
     Active Substance: FLUOROURACIL
     Indication: Breast cancer metastatic
  12. FULVESTRANT [Suspect]
     Active Substance: FULVESTRANT
     Indication: Human epidermal growth factor receptor negative
     Route: 065
  13. FULVESTRANT [Suspect]
     Active Substance: FULVESTRANT
     Indication: Hormone receptor positive breast cancer
  14. FULVESTRANT [Suspect]
     Active Substance: FULVESTRANT
     Indication: Breast cancer metastatic
  15. LETROZOLE [Suspect]
     Active Substance: LETROZOLE
     Indication: Human epidermal growth factor receptor negative
     Dosage: (DOSAGE FORM: TABLET)
     Route: 065
  16. LETROZOLE [Suspect]
     Active Substance: LETROZOLE
     Indication: Hormone receptor positive breast cancer
  17. LETROZOLE [Suspect]
     Active Substance: LETROZOLE
     Indication: Breast cancer metastatic
  18. EPIRUBICIN HYDROCHLORIDE [Suspect]
     Active Substance: EPIRUBICIN HYDROCHLORIDE
     Indication: Human epidermal growth factor receptor negative
     Dosage: (DOSAGE FORM: SOLUTION FOR INJECTION)
     Route: 065
  19. EPIRUBICIN HYDROCHLORIDE [Suspect]
     Active Substance: EPIRUBICIN HYDROCHLORIDE
     Indication: Hormone receptor positive breast cancer
     Dosage: (DOSAGE FORM: SOLUTION INTRAVENOUS)
     Route: 065
  20. EPIRUBICIN HYDROCHLORIDE [Suspect]
     Active Substance: EPIRUBICIN HYDROCHLORIDE
     Indication: Breast cancer metastatic
  21. TAMOXIFEN [Suspect]
     Active Substance: TAMOXIFEN
     Indication: Human epidermal growth factor receptor negative
     Dosage: (DOSAGE FORM: FILM-COATED TABLET)
     Route: 048
  22. TAMOXIFEN [Suspect]
     Active Substance: TAMOXIFEN
     Indication: Hormone receptor positive breast cancer
     Dosage: (DOSAGE FORM: TABLETS)
     Route: 048
  23. TAMOXIFEN [Suspect]
     Active Substance: TAMOXIFEN
     Indication: Breast cancer metastatic
  24. TAXOL [Suspect]
     Active Substance: PACLITAXEL
     Indication: Human epidermal growth factor receptor negative
     Dosage: (DOSAGE FORM: SOLUTION FOR INJECTION)
     Route: 030
  25. TAXOL [Suspect]
     Active Substance: PACLITAXEL
     Indication: Hormone receptor positive breast cancer
     Dosage: (DOSAGE FORM: SOLUTION INTRAVENOUS)
     Route: 030
  26. TAXOL [Suspect]
     Active Substance: PACLITAXEL
     Indication: Breast cancer metastatic
  27. XELODA [Suspect]
     Active Substance: CAPECITABINE
     Indication: Human epidermal growth factor receptor negative
     Dosage: (DOSAGE FORM: TABLET)
     Route: 048
  28. XELODA [Suspect]
     Active Substance: CAPECITABINE
     Indication: Hormone receptor positive breast cancer
  29. XELODA [Suspect]
     Active Substance: CAPECITABINE
     Indication: Breast cancer metastatic

REACTIONS (1)
  - Metastasis [Unknown]
